FAERS Safety Report 11417773 (Version 5)
Quarter: 2015Q3

REPORT INFORMATION
  Report Type: Spontaneous
  Country: IT (occurrence: IT)
  Receive Date: 20150825
  Receipt Date: 20150916
  Transmission Date: 20151125
  Serious: Yes (Hospitalization)
  Sender: FDA-Public Use
  Company Number: IT-TEVA-587580ACC

PATIENT
  Age: 95 Year
  Sex: Male

DRUGS (5)
  1. HALCION - 125 MICROGRAMMI COMPRESSE [Concomitant]
     Indication: INSOMNIA
     Dosage: 125 UG
     Route: 048
     Dates: start: 20150703, end: 20150813
  2. AMLODIPINE [Concomitant]
     Active Substance: AMLODIPINE BESYLATE
     Indication: HYPERTENSION
     Dosage: 2.5 MG
     Route: 048
     Dates: start: 20150703, end: 20150813
  3. CITALOPRAM BROMOHYDRATE [Suspect]
     Active Substance: CITALOPRAM HYDROBROMIDE
     Indication: POST-TRAUMATIC STRESS DISORDER
     Dosage: 20 MILLIGRAM DAILY; 20 MG DAILY
     Route: 048
     Dates: start: 20150703, end: 20150728
  4. SIRIO - 25 MG + 100 MG COMPRESSE EFFERVESCENTI [Suspect]
     Active Substance: CARBIDOPA\MELEVODOPA
     Indication: PARKINSON^S DISEASE
     Dosage: 125 MILLIGRAM DAILY; 125 MG DAILY, EFFERVESCENT TABLET
     Route: 048
     Dates: start: 20141028, end: 20150728
  5. TRITTICO - 75 MG COMPRESSE A RILASCIO PROLUNGATO [Suspect]
     Active Substance: TRAZODONE HYDROCHLORIDE
     Indication: POST-TRAUMATIC STRESS DISORDER
     Dosage: 75 MILLIGRAM DAILY; 75 MG DAILY
     Route: 048
     Dates: start: 20141028, end: 20150703

REACTIONS (4)
  - Depressive symptom [Unknown]
  - Atrioventricular block second degree [Recovered/Resolved]
  - Bradycardia [Unknown]
  - Off label use [Unknown]

NARRATIVE: CASE EVENT DATE: 20150703
